FAERS Safety Report 5868174-3 (Version None)
Quarter: 2008Q3

REPORT INFORMATION
  Report Type: 
  Country: None (occurrence: None)
  Receive Date: 20080902
  Receipt Date: 20080822
  Transmission Date: 20090109
  Serious: Yes (Death)
  Sender: FDA-Public Use
  Company Number: BR-ABBOTT-08R-020-0473572-00

PATIENT
  Sex: Female
  Weight: 0.64 kg

DRUGS (1)
  1. SURVANTA [Suspect]
     Indication: DRUG USE FOR UNKNOWN INDICATION
     Dosage: 100MG/KG
     Route: 007
     Dates: start: 20080726, end: 20080727

REACTIONS (1)
  - PULMONARY HAEMORRHAGE [None]
